FAERS Safety Report 4709090-X (Version None)
Quarter: 2005Q3

REPORT INFORMATION
  Report Type: 
  Country: None (occurrence: None)
  Receive Date: 20050707
  Receipt Date: 20050707
  Transmission Date: 20060218
  Serious: Yes (Hospitalization)
  Sender: FDA-Public Use
  Company Number: None

PATIENT
  Sex: Female
  Weight: 92.9874 kg

DRUGS (2)
  1. DEPAKOTE [Suspect]
     Indication: PSYCHOTIC DISORDER
     Dosage: 500MG BID ORAL
     Route: 048
     Dates: start: 20050406, end: 20050630
  2. DEPAKOTE [Suspect]
     Indication: AFFECTIVE DISORDER
     Dosage: 250MG NOON ORAL
     Route: 048
     Dates: start: 20050406, end: 20050630

REACTIONS (1)
  - PANCREATITIS [None]
